FAERS Safety Report 7901691-0 (Version None)
Quarter: 2011Q4

REPORT INFORMATION
  Report Type: 
  Country: None (occurrence: None)
  Receive Date: 20111108
  Receipt Date: 20111025
  Transmission Date: 20120403
  Serious: Yes (Life-Threatening, Hospitalization)
  Sender: FDA-Public Use
  Company Number: ES-GENZYME-CLOF-1001857

PATIENT
  Sex: Female
  Weight: 64 kg

DRUGS (2)
  1. CYTARABINE [Suspect]
     Indication: ACUTE MYELOID LEUKAEMIA
     Dosage: 32.4 MG, UNK
     Route: 058
     Dates: start: 20111003
  2. EVOLTRA [Suspect]
     Indication: ACUTE MYELOID LEUKAEMIA
     Dosage: 32.4 MG, UNK
     Route: 042
     Dates: start: 20111003

REACTIONS (2)
  - CENTRAL NERVOUS SYSTEM LESION [None]
  - FEBRILE NEUTROPENIA [None]
